FAERS Safety Report 8811583 (Version 2)
Quarter: 2012Q4

REPORT INFORMATION
  Report Type: 
  Country: BR (occurrence: BR)
  Receive Date: 20120927
  Receipt Date: 20121128
  Transmission Date: 20130627
  Serious: Yes (Other)
  Sender: FDA-Public Use
  Company Number: PHHY2012BR083181

PATIENT
  Age: 92 Year
  Sex: Female
  Weight: 58 kg

DRUGS (6)
  1. MIACALCIC [Suspect]
     Indication: BONE FISSURE
     Dosage: 1 DF, (1 nebulization daily)
     Route: 045
  2. MIACALCIC [Suspect]
     Indication: PAIN
     Dosage: 1 DF, (1 nebulization daily)
     Route: 045
  3. MIACALCIC [Suspect]
     Indication: CALCIUM DEFICIENCY
  4. CARVEDILOL [Concomitant]
     Indication: CARDIAC DISORDER
     Dosage: 6.25 mg, (2 tablets daily)
     Route: 048
  5. AMIODARONE HYDROCHLORIDE [Concomitant]
     Indication: CARDIAC DISORDER
     Dosage: 200 mg, (1 tablet daily)
     Route: 048
  6. CALCIUM [Concomitant]
     Indication: CALCIUM DEFICIENCY
     Dosage: 500 mg, (1 time daily)
     Route: 048

REACTIONS (4)
  - Lumbar vertebral fracture [Not Recovered/Not Resolved]
  - Back pain [Not Recovered/Not Resolved]
  - Drug ineffective [Not Recovered/Not Resolved]
  - Product quality issue [None]
